FAERS Safety Report 7203494-1 (Version None)
Quarter: 2010Q4

REPORT INFORMATION
  Report Type: 
  Country: None (occurrence: None)
  Receive Date: 20101228
  Receipt Date: 20101228
  Transmission Date: 20110411
  Serious: Yes (Hospitalization)
  Sender: FDA-Public Use
  Company Number: None

PATIENT
  Age: 46 Year
  Sex: Male

DRUGS (8)
  1. DALTEPARIN 15,000 UNITS EISAI INC [Suspect]
     Indication: DEEP VEIN THROMBOSIS
     Dosage: 15,000 UNITS DAILY SQ
     Route: 058
     Dates: start: 20101004, end: 20101011
  2. DALTEPARIN 15,000 UNITS EISAI INC [Suspect]
     Indication: PULMONARY EMBOLISM
     Dosage: 15,000 UNITS DAILY SQ
     Route: 058
     Dates: start: 20101004, end: 20101011
  3. UGEMENTIN [Concomitant]
  4. LEVOFLOXACIN [Concomitant]
  5. DOCUSATE SODIUM [Concomitant]
  6. OXYBUTYNIN [Concomitant]
  7. PERCOCET [Concomitant]
  8. SENNA [Concomitant]

REACTIONS (2)
  - CHEST PAIN [None]
  - TRANSAMINASES INCREASED [None]
